FAERS Safety Report 7629829-3 (Version None)
Quarter: 2011Q3

REPORT INFORMATION
  Report Type: 
  Country: None (occurrence: None)
  Receive Date: 20110722
  Receipt Date: 20110717
  Transmission Date: 20111222
  Serious: Yes (Other)
  Sender: FDA-Public Use
  Company Number: DE-GENZYME-FLUD-1001222

PATIENT
  Age: 9 Year
  Sex: Male

DRUGS (11)
  1. MELPHALAN HYDROCHLORIDE [Suspect]
     Indication: CHRONIC GRANULOMATOUS DISEASE
     Dosage: 70 MG/M2, UNK
     Route: 065
  2. INDIUM (111 IN) [Suspect]
     Indication: STEM CELL TRANSPLANT
     Dosage: UNK, 71 +/- 28 MBQ
     Route: 042
  3. MELPHALAN HYDROCHLORIDE [Suspect]
     Indication: STEM CELL TRANSPLANT
  4. YTTRIUM (90 Y) [Suspect]
     Indication: STEM CELL TRANSPLANT
     Dosage: UNK
     Route: 042
  5. ANTI-THYMOCYTE GLOBULIN NOS [Suspect]
     Indication: CHRONIC GRANULOMATOUS DISEASE
  6. FLUDARA [Suspect]
     Indication: STEM CELL TRANSPLANT
     Dosage: 160 MG/M2, UNK
     Route: 065
  7. YTTRIUM (90 Y) [Suspect]
     Indication: CHRONIC GRANULOMATOUS DISEASE
  8. CYCLOSPORINE [Concomitant]
     Indication: PROPHYLAXIS AGAINST GRAFT VERSUS HOST DISEASE
     Dosage: UNK
     Route: 065
  9. ANTI-THYMOCYTE GLOBULIN NOS [Suspect]
     Indication: STEM CELL TRANSPLANT
     Dosage: UNK
     Route: 065
  10. FLUDARA [Suspect]
     Indication: CHRONIC GRANULOMATOUS DISEASE
  11. INDIUM (111 IN) [Suspect]
     Indication: CHRONIC GRANULOMATOUS DISEASE

REACTIONS (4)
  - BACTERIAL SEPSIS [None]
  - PANCREATITIS ACUTE [None]
  - PNEUMONITIS [None]
  - COLITIS [None]
